FAERS Safety Report 10006594 (Version 1)
Quarter: 2014Q1

REPORT INFORMATION
  Report Type: Report from Study
  Country: US (occurrence: US)
  Receive Date: 20140313
  Receipt Date: 20140313
  Transmission Date: 20141002
  Serious: Yes (Hospitalization)
  Sender: FDA-Public Use
  Company Number: US-ACTELION-A-NJ2014-95872

PATIENT
  Age: 44 Year
  Sex: Female
  Weight: 113.83 kg

DRUGS (2)
  1. VENTAVIS [Suspect]
     Indication: PULMONARY ARTERIAL HYPERTENSION
     Dosage: UNK
     Route: 055
  2. OXYGEN [Concomitant]

REACTIONS (3)
  - Tongue neoplasm malignant stage unspecified [Unknown]
  - Tongue operation [Unknown]
  - Biopsy ovary [Unknown]
